FAERS Safety Report 20584504 (Version 1)
Quarter: 2022Q1

REPORT INFORMATION
  Report Type: Spontaneous
  Country: US (occurrence: US)
  Receive Date: 20220311
  Receipt Date: 20220311
  Transmission Date: 20220423
  Serious: No
  Sender: FDA-Public Use
  Company Number: US-BAYER-2022A036471

PATIENT

DRUGS (1)
  1. MIRALAX [Suspect]
     Active Substance: POLYETHYLENE GLYCOL 3350

REACTIONS (4)
  - Abdominal pain upper [Unknown]
  - Dyspepsia [Recovered/Resolved]
  - Therapeutic product effect decreased [Unknown]
  - Gastrooesophageal reflux disease [Recovered/Resolved]
